FAERS Safety Report 7462630-2 (Version None)
Quarter: 2011Q2

REPORT INFORMATION
  Report Type: 
  Country: None (occurrence: None)
  Receive Date: 20110506
  Receipt Date: 20110427
  Transmission Date: 20111010
  Serious: Yes (Hospitalization)
  Sender: FDA-Public Use
  Company Number: PHHY2011NO20118

PATIENT
  Sex: Male
  Weight: 89 kg

DRUGS (3)
  1. EFFEXOR [Concomitant]
     Indication: ANXIETY
     Dosage: 150 MG, QD
     Dates: start: 20100225
  2. RITALIN [Suspect]
     Indication: ATTENTION DEFICIT/HYPERACTIVITY DISORDER
     Dosage: 55 MG, QD
     Dates: start: 20091020
  3. ORFIRIL [Concomitant]
     Dosage: 450 MG, BID
     Dates: start: 20101220

REACTIONS (3)
  - HYPERTENSION [None]
  - ALCOHOL POISONING [None]
  - SUICIDAL IDEATION [None]
